FAERS Safety Report 5428262-2 (Version None)
Quarter: 2007Q3

REPORT INFORMATION
  Report Type: 
  Country: None (occurrence: None)
  Receive Date: 20070828
  Receipt Date: 20070816
  Transmission Date: 20080115
  Serious: Yes (Other)
  Sender: FDA-Public Use
  Company Number: US-PFIZER INC-2007069790

PATIENT
  Sex: Male
  Weight: 86.4 kg

DRUGS (4)
  1. CHANTIX [Suspect]
     Indication: SMOKING CESSATION THERAPY
     Dates: start: 20070801, end: 20070801
  2. ANTIHYPERTENSIVES [Concomitant]
  3. CHOLESTEROL [Concomitant]
  4. INSULIN [Concomitant]
     Indication: DIABETES MELLITUS

REACTIONS (4)
  - DIZZINESS [None]
  - NAUSEA [None]
  - PROTEIN URINE PRESENT [None]
  - STOMACH DISCOMFORT [None]
